FAERS Safety Report 13345152 (Version 1)
Quarter: 2017Q1

REPORT INFORMATION
  Report Type: Spontaneous
  Country: US (occurrence: US)
  Receive Date: 20170317
  Receipt Date: 20170317
  Transmission Date: 20170428
  Serious: No
  Sender: FDA-Public Use
  Company Number: US-PFIZER INC-2017109192

PATIENT
  Sex: Female

DRUGS (1)
  1. PREMARIN [Suspect]
     Active Substance: ESTROGENS, CONJUGATED
     Dosage: UNK (USE IT FOR 2 WEEKS, THEN 3X/WK)
     Route: 067

REACTIONS (3)
  - Abdominal distension [Unknown]
  - Weight increased [Unknown]
  - Product use issue [Unknown]
